FAERS Safety Report 8078575-3 (Version None)
Quarter: 2012Q1

REPORT INFORMATION
  Report Type: 
  Country: None (occurrence: None)
  Receive Date: 20120127
  Receipt Date: 20110103
  Transmission Date: 20120608
  Serious: No
  Sender: FDA-Public Use
  Company Number: US-ABBOTT-11P-163-0694960-00

PATIENT
  Age: 50 Year
  Sex: Female

DRUGS (4)
  1. EFFEXOR [Concomitant]
     Indication: ANXIETY
  2. LUNESTA [Concomitant]
     Indication: PRODUCT USED FOR UNKNOWN INDICATION
     Dosage: AT HOUR OF SLEEP DAILY
  3. HUMIRA [Suspect]
     Indication: RHEUMATOID ARTHRITIS
     Dates: start: 20080401, end: 20101229
  4. ASPIRIN [Concomitant]
     Indication: PROPHYLAXIS

REACTIONS (7)
  - PAIN [None]
  - AGITATION [None]
  - PRURITUS [None]
  - SLEEP DISORDER [None]
  - INSOMNIA [None]
  - METAMORPHOPSIA [None]
  - INITIAL INSOMNIA [None]
